FAERS Safety Report 5187957-9 (Version None)
Quarter: 2006Q4

REPORT INFORMATION
  Report Type: 
  Country: None (occurrence: None)
  Receive Date: 20061220
  Receipt Date: 20061220
  Transmission Date: 20070319
  Serious: Yes (Life-Threatening)
  Sender: FDA-Public Use
  Company Number: None

PATIENT
  Age: 55 Year
  Sex: Female

DRUGS (1)
  1. FENTANYL CITRATE [Suspect]
     Indication: SEDATION
     Dosage: INTRAVENOUS;;0;0
     Dates: start: 20060928, end: 20060928

REACTIONS (2)
  - APNOEA [None]
  - LOSS OF CONSCIOUSNESS [None]
